FAERS Safety Report 5537474-9 (Version None)
Quarter: 2007Q4

REPORT INFORMATION
  Report Type: 
  Country: None (occurrence: None)
  Receive Date: 20071207
  Receipt Date: 20071128
  Transmission Date: 20080405
  Serious: Yes (Hospitalization)
  Sender: FDA-Public Use
  Company Number: US-ELI_LILLY_AND_COMPANY-US200711006704

PATIENT
  Sex: Male

DRUGS (2)
  1. HUMULIN N [Suspect]
  2. METFORMIN HCL [Concomitant]

REACTIONS (2)
  - GLARE [None]
  - OPTIC NERVE DISORDER [None]
